FAERS Safety Report 6085007-3 (Version None)
Quarter: 2009Q1

REPORT INFORMATION
  Report Type: 
  Country: None (occurrence: None)
  Receive Date: 20090220
  Receipt Date: 20090210
  Transmission Date: 20090719
  Serious: Yes (Hospitalization)
  Sender: FDA-Public Use
  Company Number: SE-AMGEN-US295551

PATIENT
  Sex: Male

DRUGS (17)
  1. ENBREL [Suspect]
     Indication: RHEUMATOID ARTHRITIS
     Dosage: UNKNOWN
     Route: 065
     Dates: start: 20070828, end: 20080411
  2. METHOTREXATE [Concomitant]
     Dosage: UNKNOWN
     Dates: end: 20080401
  3. XALATAN [Concomitant]
  4. OMEPRAZOLE [Concomitant]
  5. COSOPT [Concomitant]
  6. AMLODIPINE [Concomitant]
  7. FOLACIN [Concomitant]
  8. ALVEDON [Concomitant]
  9. PRONAXEN [Concomitant]
  10. EMCONCOR [Concomitant]
  11. TROMBYL [Concomitant]
     Dosage: 75 MG, DOSE FREQUENCY UNKNOWN
     Route: 048
  12. PREDNISOLONE [Concomitant]
  13. CALCICHEW-D3 [Concomitant]
  14. COZAAR [Concomitant]
  15. NOVORAPID [Concomitant]
  16. NOVOLOG MIX 70/30 [Concomitant]
  17. ZOLPIDEM TARTRATE [Concomitant]

REACTIONS (2)
  - BACTERIAL INFECTION [None]
  - PERICARDITIS [None]
